FAERS Safety Report 8776854 (Version 3)
Quarter: 2013Q1

REPORT INFORMATION
  Report Type: Report from Study
  Country: NL (occurrence: NL)
  Receive Date: 20120911
  Receipt Date: 20130123
  Transmission Date: 20140127
  Serious: Yes (Hospitalization)
  Sender: FDA-Public Use
  Company Number: NL-JNJFOC-20120901682

PATIENT
  Age: 15 Year
  Sex: Female
  Weight: 42 kg

DRUGS (3)
  1. REMICADE [Suspect]
     Indication: CROHN^S DISEASE
     Dosage: DISCONTINUED PRIOR TO STUDY
     Route: 042
     Dates: start: 20061024
  2. HUMIRA [Suspect]
     Indication: CROHN^S DISEASE
     Dates: start: 20110223
  3. AZATHIOPRINE [Concomitant]

REACTIONS (1)
  - Takayasu^s arteritis [Not Recovered/Not Resolved]
